FAERS Safety Report 5598345-5 (Version None)
Quarter: 2008Q1

REPORT INFORMATION
  Report Type: 
  Country: None (occurrence: None)
  Receive Date: 20080122
  Receipt Date: 20080117
  Transmission Date: 20080703
  Serious: Yes (Hospitalization)
  Sender: FDA-Public Use
  Company Number: D0055645A

PATIENT
  Age: 54 Year
  Sex: Female
  Weight: 63 kg

DRUGS (2)
  1. TYKERB [Suspect]
     Route: 048
     Dates: start: 20070516
  2. XELODA [Concomitant]
     Route: 048
     Dates: start: 20070516

REACTIONS (4)
  - CEREBRAL ARTERY OCCLUSION [None]
  - HEMIPARESIS [None]
  - SPEECH DISORDER [None]
  - THROMBOCYTHAEMIA [None]
